FAERS Safety Report 8893808 (Version 1)
Quarter: 2012Q4

REPORT INFORMATION
  Report Type: 
  Country: US (occurrence: US)
  Receive Date: 20121107
  Receipt Date: 20121107
  Transmission Date: 20130627
  Serious: No
  Sender: FDA-Public Use
  Company Number: US-AMGEN-USASP2012053975

PATIENT
  Age: 57 Year
  Sex: Female
  Weight: 96.6 kg

DRUGS (6)
  1. ENBREL [Suspect]
     Indication: PRODUCT USED FOR UNKNOWN INDICATION
     Dosage: 50 mg, qwk
     Route: 058
  2. SERTRALINE [Concomitant]
     Dosage: 25 mg, UNK
  3. DIOVAN [Concomitant]
     Dosage: 40 mg, UNK
  4. CLOTRIMAZOLE [Concomitant]
     Dosage: 1 %, UNK
  5. ALPRAZOLAM [Concomitant]
     Dosage: 0.25 mg, UNK
  6. HYDROCODONE/APAP [Concomitant]
     Dosage: 5-325 mg

REACTIONS (3)
  - Skin discolouration [Unknown]
  - Nail discolouration [Unknown]
  - Rash [Unknown]
